FAERS Safety Report 14056105 (Version 2)
Quarter: 2017Q4

REPORT INFORMATION
  Report Type: Report from Study
  Country: None (occurrence: US)
  Receive Date: 20171006
  Receipt Date: 20171023
  Transmission Date: 20180321
  Serious: Yes (Hospitalization, Other)
  Sender: FDA-Public Use
  Company Number: US-ABBVIE-17K-163-2118933-00

PATIENT
  Age: 62 Year
  Sex: Male
  Weight: 77.18 kg

DRUGS (2)
  1. HUMIRA [Suspect]
     Active Substance: ADALIMUMAB
     Indication: CROHN^S DISEASE
     Route: 058
     Dates: start: 201402, end: 201405
  2. HUMIRA [Suspect]
     Active Substance: ADALIMUMAB
     Route: 058
     Dates: start: 201405

REACTIONS (9)
  - Procedural complication [Recovered/Resolved]
  - Weight increased [Not Recovered/Not Resolved]
  - Jejunal stenosis [Recovered/Resolved]
  - Enteritis [Recovering/Resolving]
  - Gastrointestinal wall thickening [Not Recovered/Not Resolved]
  - Post procedural complication [Recovering/Resolving]
  - Drug level decreased [Not Recovered/Not Resolved]
  - Crohn^s disease [Recovered/Resolved]
  - Aspiration [Recovered/Resolved]

NARRATIVE: CASE EVENT DATE: 2014
